FAERS Safety Report 25541133 (Version 1)
Quarter: 2025Q3

REPORT INFORMATION
  Report Type: Spontaneous
  Country: KR (occurrence: KR)
  Receive Date: 20250710
  Receipt Date: 20250710
  Transmission Date: 20251021
  Serious: Yes (Other)
  Sender: TAKEDA
  Company Number: KR-TAKEDA-2025TUS061682

PATIENT

DRUGS (1)
  1. OBIZUR [Suspect]
     Active Substance: SUSOCTOCOG ALFA
     Indication: Acquired haemophilia
     Dosage: 100 INTERNATIONAL UNIT/KILOGRAM, BID

REACTIONS (1)
  - Thrombotic microangiopathy [Not Recovered/Not Resolved]
